FAERS Safety Report 10265530 (Version 1)
Quarter: 2014Q2

REPORT INFORMATION
  Report Type: Spontaneous
  Country: US (occurrence: US)
  Receive Date: 20140627
  Receipt Date: 20140627
  Transmission Date: 20141212
  Serious: No
  Sender: FDA-Public Use
  Company Number: US-009507513-1406USA008820

PATIENT
  Sex: Female

DRUGS (1)
  1. TEMODAR [Suspect]
     Dosage: 100 MG/TAKES 3 CAPSULES DAILY FOR 5 DAYS
     Route: 048

REACTIONS (1)
  - Urticaria [Unknown]
